FAERS Safety Report 4487588-X (Version None)
Quarter: 2004Q4

REPORT INFORMATION
  Report Type: 
  Country: None (occurrence: None)
  Receive Date: 20041027
  Receipt Date: 20041027
  Transmission Date: 20050328
  Serious: Yes (Hospitalization)
  Sender: FDA-Public Use
  Company Number: None

PATIENT
  Age: 85 Year
  Sex: Male
  Weight: 90 kg

DRUGS (8)
  1. WARFARIN   5 MG TAB [Suspect]
     Indication: ATRIAL FIBRILLATION
     Dosage: 5 MG   QD   ORAL
     Route: 048
     Dates: start: 20030822, end: 20040421
  2. SERTRALINE HCL [Concomitant]
  3. LISINOPRIL [Concomitant]
  4. ALPRAZOLAM [Concomitant]
  5. METOPROLOL SUCCINATE [Concomitant]
  6. DOCUSATE [Concomitant]
  7. ASPIRIN [Concomitant]
  8. CLONAZEPAM [Concomitant]

REACTIONS (8)
  - ANAEMIA [None]
  - ASTHENIA [None]
  - CHEST PAIN [None]
  - DIZZINESS [None]
  - FAECES DISCOLOURED [None]
  - NAUSEA [None]
  - PAIN [None]
  - SKIN INFECTION [None]
